FAERS Safety Report 19266533 (Version 2)
Quarter: 2021Q3

REPORT INFORMATION
  Report Type: Spontaneous
  Country: US (occurrence: US)
  Receive Date: 20210517
  Receipt Date: 20210730
  Transmission Date: 20211014
  Serious: No
  Sender: FDA-Public Use
  Company Number: US-BIOGEN-2021BI00982883

PATIENT
  Sex: Female

DRUGS (1)
  1. TYSABRI [Suspect]
     Active Substance: NATALIZUMAB
     Indication: MULTIPLE SCLEROSIS
     Dosage: INFUSED OVER 1 HOUR
     Route: 042
     Dates: start: 20210114

REACTIONS (6)
  - Therapeutic response shortened [Unknown]
  - General physical health deterioration [Recovered/Resolved]
  - Mobility decreased [Recovered/Resolved]
  - Inappropriate schedule of product administration [Unknown]
  - Multiple sclerosis [Unknown]
  - Malaise [Unknown]
